FAERS Safety Report 15311949 (Version 2)
Quarter: 2018Q3

REPORT INFORMATION
  Report Type: Spontaneous
  Country: BR (occurrence: BR)
  Receive Date: 20180823
  Receipt Date: 20180920
  Transmission Date: 20181010
  Serious: Yes (Other)
  Sender: FDA-Public Use
  Company Number: BR-SA-2018SA221131

PATIENT
  Sex: Male

DRUGS (2)
  1. CYMBI [DULOXETINE HYDROCHLORIDE] [Concomitant]
     Indication: ANXIETY
     Dosage: UNK
  2. STILNOX [Suspect]
     Active Substance: ZOLPIDEM TARTRATE
     Indication: ANXIETY
     Dosage: 6.25 MG, BID
     Route: 048

REACTIONS (4)
  - Insomnia [Unknown]
  - Amnesia [Unknown]
  - Dependence [Unknown]
  - Intentional product misuse [Unknown]
